APPROVED DRUG PRODUCT: OXYCODONE HYDROCHLORIDE
Active Ingredient: OXYCODONE HYDROCHLORIDE
Strength: 15MG
Dosage Form/Route: TABLET;ORAL
Application: A203638 | Product #003 | TE Code: AB
Applicant: AMNEAL PHARMACEUTICALS
Approved: Jun 3, 2014 | RLD: No | RS: No | Type: RX